FAERS Safety Report 5619111-8 (Version None)
Quarter: 2008Q1

REPORT INFORMATION
  Report Type: 
  Country: None (occurrence: None)
  Receive Date: 20080207
  Receipt Date: 20080204
  Transmission Date: 20080703
  Serious: Yes (Other)
  Sender: FDA-Public Use
  Company Number: US-ALLERGAN-0801363US

PATIENT
  Sex: Female

DRUGS (1)
  1. BOTOX COSMETIC [Suspect]
     Indication: SKIN WRINKLING
     Dosage: 70 UNITS, SINGLE
     Route: 030
     Dates: start: 20071206, end: 20071206

REACTIONS (2)
  - DYSPNOEA [None]
  - HEART RATE INCREASED [None]
